FAERS Safety Report 21111538 (Version 1)
Quarter: 2022Q3

REPORT INFORMATION
  Report Type: Spontaneous
  Country: US (occurrence: US)
  Receive Date: 20220721
  Receipt Date: 20220721
  Transmission Date: 20221026
  Serious: Yes (Other)
  Sender: FDA-Public Use
  Company Number: US-PFIZER INC-PV202200026826

PATIENT
  Sex: Female

DRUGS (1)
  1. PREMPRO [Suspect]
     Active Substance: ESTROGENS, CONJUGATED\MEDROXYPROGESTERONE ACETATE
     Dosage: UNK

REACTIONS (6)
  - Breast cancer female [Unknown]
  - Posture abnormal [Unknown]
  - Alopecia [Unknown]
  - Tooth loss [Unknown]
  - Tooth discolouration [Unknown]
  - Dental caries [Unknown]

NARRATIVE: CASE EVENT DATE: 20160101
